FAERS Safety Report 9527812 (Version 1)
Quarter: 2013Q1

REPORT INFORMATION
  Report Type: Spontaneous
  Country: US (occurrence: None)
  Receive Date: 20130314
  Receipt Date: 20130314
  Transmission Date: 20140127
  Serious: No
  Sender: FDA-Public Use
  Company Number: 1301USA000406

PATIENT
  Age: 22 Year
  Sex: Male

DRUGS (3)
  1. PEGINTRON (PEGINTERFERON ALFA-2B) POWDER FOR INJECTION [Suspect]
     Indication: HEPATITIS C
     Dosage: UNK
     Dates: start: 20121212
  2. RIBAVIRIN (RIBAVIRIN) TABLET, 200 MG [Suspect]
     Dosage: UNK
     Dates: start: 20121212
  3. BOCEPREVIR (BOCEPREVIR) [Suspect]
     Dosage: UNK
     Dates: start: 20130108

REACTIONS (1)
  - Dry eye [None]
